FAERS Safety Report 19751535 (Version 38)
Quarter: 2023Q1

REPORT INFORMATION
  Report Type: Spontaneous
  Country: GB (occurrence: GB)
  Receive Date: 20210827
  Receipt Date: 20230325
  Transmission Date: 20230417
  Serious: Yes (Death, Hospitalization, Other)
  Sender: FDA-Public Use
  Company Number: None

PATIENT
  Age: 67 Year
  Sex: Female

DRUGS (35)
  1. CAPECITABINE [Suspect]
     Active Substance: CAPECITABINE
     Indication: HER2 positive breast cancer
     Dosage: 1500 MILLIGRAM
     Route: 048
     Dates: start: 20161122, end: 20161213
  2. CAPECITABINE [Suspect]
     Active Substance: CAPECITABINE
     Indication: Breast cancer metastatic
     Route: 048
     Dates: start: 20161122, end: 20161216
  3. CAPECITABINE [Suspect]
     Active Substance: CAPECITABINE
     Dosage: 1300 MILLIGRAM (0.5 DAY)
     Route: 048
     Dates: start: 20161213, end: 20161216
  4. CAPECITABINE [Suspect]
     Active Substance: CAPECITABINE
     Route: 048
     Dates: start: 20161213, end: 20161216
  5. CAPECITABINE [Suspect]
     Active Substance: CAPECITABINE
     Dates: start: 20160531, end: 20161115
  6. CAPECITABINE [Suspect]
     Active Substance: CAPECITABINE
     Route: 048
  7. EXEMESTANE [Suspect]
     Active Substance: EXEMESTANE
     Indication: HER2 positive breast cancer
     Route: 048
     Dates: start: 20160531, end: 20160610
  8. EXEMESTANE [Suspect]
     Active Substance: EXEMESTANE
     Indication: Breast cancer metastatic
     Dates: end: 20160712
  9. TRASTUZUMAB [Suspect]
     Active Substance: TRASTUZUMAB
     Indication: HER2 positive breast cancer
     Route: 058
     Dates: start: 20160531, end: 20161115
  10. TRASTUZUMAB [Suspect]
     Active Substance: TRASTUZUMAB
     Indication: Breast cancer metastatic
     Route: 058
     Dates: start: 20151124, end: 20151221
  11. TAMOXIFEN [Suspect]
     Active Substance: TAMOXIFEN
     Indication: HER2 positive breast cancer
     Route: 048
     Dates: start: 20160712, end: 20160802
  12. TAMOXIFEN [Suspect]
     Active Substance: TAMOXIFEN
     Indication: Breast cancer metastatic
     Dates: start: 20160712, end: 20160802
  13. PACLITAXEL [Suspect]
     Active Substance: PACLITAXEL
     Indication: HER2 positive breast cancer
     Route: 042
     Dates: start: 20151124, end: 20151221
  14. PACLITAXEL [Suspect]
     Active Substance: PACLITAXEL
     Indication: Breast cancer metastatic
     Dosage: UNK
     Dates: start: 20161124
  15. PACLITAXEL [Suspect]
     Active Substance: PACLITAXEL
     Route: 042
     Dates: start: 20161122
  16. PACLITAXEL [Suspect]
     Active Substance: PACLITAXEL
     Dates: start: 20160531, end: 20161115
  17. ADALIMUMAB [Suspect]
     Active Substance: ADALIMUMAB
     Indication: Product used for unknown indication
     Route: 058
     Dates: start: 20151124
  18. HYALURONIDASE (HUMAN RECOMBINANT) [Suspect]
     Active Substance: HYALURONIDASE (HUMAN RECOMBINANT)
     Indication: HER2 positive breast cancer
     Dosage: 600 MG, EVERY 3 WEEKS
     Route: 058
     Dates: start: 20151124, end: 20151221
  19. HYALURONIDASE (HUMAN RECOMBINANT) [Suspect]
     Active Substance: HYALURONIDASE (HUMAN RECOMBINANT)
     Dosage: 600 MG, EVERY 3 WEEKS
     Route: 058
     Dates: start: 20160531, end: 20161115
  20. HYALURONIDASE [Suspect]
     Active Substance: HYALURONIDASE
     Indication: HER2 positive breast cancer
     Dosage: 600 MG, EVERY 3 WEEKS
     Route: 058
     Dates: start: 20151124, end: 20151221
  21. HYALURONIDASE [Suspect]
     Active Substance: HYALURONIDASE
     Dosage: 600 MG, EVERY 3 WEEKS
     Route: 058
     Dates: start: 20160531
  22. IMRALDI [Suspect]
     Active Substance: ADALIMUMAB
     Indication: Colitis ulcerative
     Dosage: WEEK ZERO
     Route: 058
     Dates: start: 20210401
  23. IMRALDI [Suspect]
     Active Substance: ADALIMUMAB
     Dosage: WEEK TWO
     Route: 057
  24. IMRALDI [Suspect]
     Active Substance: ADALIMUMAB
     Dosage: FROM WEEK FOUR (MAINTENANCE)
     Route: 057
  25. HYALURONIDASE (HUMAN RECOMBINANT) [Suspect]
     Active Substance: HYALURONIDASE (HUMAN RECOMBINANT)
     Indication: Product used for unknown indication
     Route: 058
     Dates: end: 20160531
  26. HYALURONIDASE (HUMAN RECOMBINANT) [Suspect]
     Active Substance: HYALURONIDASE (HUMAN RECOMBINANT)
     Route: 058
     Dates: start: 20151124, end: 20151221
  27. HYALURONIDASE (HUMAN RECOMBINANT) [Suspect]
     Active Substance: HYALURONIDASE (HUMAN RECOMBINANT)
     Route: 058
     Dates: start: 20160531, end: 20161115
  28. SODIUM HYALURONATE [Suspect]
     Active Substance: HYALURONATE SODIUM
     Indication: Breast cancer metastatic
     Dosage: 600 MG, EVERY 3 WEEKS
     Route: 058
     Dates: start: 20151124, end: 20151221
  29. CALCIUM CARBONATE\CHOLECALCIFEROL [Concomitant]
     Active Substance: CALCIUM CARBONATE\CHOLECALCIFEROL
     Indication: Product used for unknown indication
     Route: 048
     Dates: start: 20101221
  30. CALCIUM CARBONATE\CHOLECALCIFEROL [Concomitant]
     Active Substance: CALCIUM CARBONATE\CHOLECALCIFEROL
     Route: 048
     Dates: start: 20101221, end: 201511
  31. ENOXAPARIN [Concomitant]
     Active Substance: ENOXAPARIN
     Indication: Thrombosis prophylaxis
     Route: 058
     Dates: start: 20160104, end: 20160106
  32. ENOXAPARIN [Concomitant]
     Active Substance: ENOXAPARIN
     Indication: Thrombosis prophylaxis
     Dosage: (PREVENTION OF VENOUS THROMBOEMBOLISM))
     Route: 058
     Dates: start: 20160106
  33. ENOXAPARIN [Concomitant]
     Active Substance: ENOXAPARIN
     Indication: Embolism venous
  34. OMEPRAZOLE [Concomitant]
     Active Substance: OMEPRAZOLE
     Indication: Product used for unknown indication
     Route: 048
     Dates: end: 20170530
  35. OMEPRAZOLE [Concomitant]
     Active Substance: OMEPRAZOLE
     Route: 048
     Dates: start: 20170530

REACTIONS (61)
  - Death [Fatal]
  - Cerebral haemorrhage [Fatal]
  - Muscle twitching [Fatal]
  - Protein total decreased [Fatal]
  - Blood urea increased [Fatal]
  - C-reactive protein increased [Fatal]
  - Urinary tract infection [Fatal]
  - Ascites [Fatal]
  - Sensory disturbance [Fatal]
  - Balance disorder [Fatal]
  - Hypertension [Fatal]
  - Hypoalbuminaemia [Fatal]
  - Asthenia [Fatal]
  - Sensory loss [Fatal]
  - Vomiting [Fatal]
  - Vomiting [Fatal]
  - Agitation [Fatal]
  - White blood cell count increased [Fatal]
  - Nausea [Fatal]
  - Blood creatinine increased [Fatal]
  - Vomiting [Fatal]
  - Vomiting [Fatal]
  - Fatigue [Fatal]
  - Balance disorder [Fatal]
  - Diarrhoea [Fatal]
  - Blood bilirubin increased [Fatal]
  - Aspartate aminotransferase increased [Fatal]
  - Hypernatraemia [Fatal]
  - Pain [Fatal]
  - Blood phosphorus increased [Fatal]
  - Vomiting [Fatal]
  - Hypokalaemia [Fatal]
  - Blood glucose increased [Fatal]
  - Blood alkaline phosphatase increased [Fatal]
  - Neutrophil count increased [Fatal]
  - Pyrexia [Fatal]
  - Dyspnoea [Fatal]
  - Constipation [Fatal]
  - Alanine aminotransferase increased [Fatal]
  - Lymphopenia [Fatal]
  - Pain [Fatal]
  - Balance disorder [Fatal]
  - Malaise [Fatal]
  - Tremor [Fatal]
  - Headache [Fatal]
  - Abdominal pain upper [Fatal]
  - Crohn^s disease [Fatal]
  - Colitis ulcerative [Fatal]
  - Haemoglobin decreased [Fatal]
  - Ill-defined disorder [Fatal]
  - Crying [Fatal]
  - Neck pain [Fatal]
  - Irritability [Fatal]
  - Injection site pain [Fatal]
  - Musculoskeletal stiffness [Fatal]
  - Back pain [Fatal]
  - Depressed mood [Fatal]
  - Insomnia [Fatal]
  - Sinusitis [Fatal]
  - Rectal haemorrhage [Fatal]
  - Product administered at inappropriate site [Fatal]

NARRATIVE: CASE EVENT DATE: 20151110
